FAERS Safety Report 17917309 (Version 1)
Quarter: 2020Q2

REPORT INFORMATION
  Report Type: Spontaneous
  Country: US (occurrence: US)
  Receive Date: 20200619
  Receipt Date: 20200619
  Transmission Date: 20200714
  Serious: Yes (Death)
  Sender: FDA-Public Use
  Company Number: None

PATIENT
  Sex: Male

DRUGS (8)
  1. KEPPRA [Concomitant]
     Active Substance: LEVETIRACETAM
  2. DETHAMETHASONE [Concomitant]
  3. OLANZAPINE. [Concomitant]
     Active Substance: OLANZAPINE
  4. LEVETIRACETA [Concomitant]
     Active Substance: LEVETIRACETAM
  5. TEMOZOLOMIDE. [Suspect]
     Active Substance: TEMOZOLOMIDE
     Indication: BRAIN NEOPLASM MALIGNANT
     Route: 048
     Dates: start: 20190730
  6. LISNOPRIL [Concomitant]
  7. TEMOZOLOMIDE. [Suspect]
     Active Substance: TEMOZOLOMIDE
     Indication: BRAIN NEOPLASM MALIGNANT
     Route: 048
     Dates: start: 20190730
  8. MULTIPLE VIT [Concomitant]

REACTIONS (1)
  - Death [None]
